FAERS Safety Report 21448160 (Version 1)
Quarter: 2022Q4

REPORT INFORMATION
  Report Type: Spontaneous
  Country: US (occurrence: None)
  Receive Date: 20221011
  Receipt Date: 20221011
  Transmission Date: 20230112
  Serious: Yes (Death)
  Sender: FDA-Public Use
  Company Number: None

PATIENT
  Age: 69 Year
  Sex: Male

DRUGS (2)
  1. VINBLASTINE SULFATE [Suspect]
     Active Substance: VINBLASTINE SULFATE
     Indication: B-cell small lymphocytic lymphoma
     Dosage: 11 MG TWICE EVERY 28 DAYS IV?
     Route: 042
     Dates: start: 202208
  2. GRANISETRON HYDROCHLORIDE [Suspect]
     Active Substance: GRANISETRON HYDROCHLORIDE
     Indication: B-cell small lymphocytic lymphoma
     Dosage: 1MG TWICE EVERY 28 DAYS IV?
     Route: 042
     Dates: start: 202208

REACTIONS (1)
  - Death [None]

NARRATIVE: CASE EVENT DATE: 20220913
